FAERS Safety Report 16150909 (Version 5)
Quarter: 2019Q3

REPORT INFORMATION
  Report Type: Report from Study
  Country: US (occurrence: US)
  Receive Date: 20190402
  Receipt Date: 20190702
  Transmission Date: 20191004
  Serious: No
  Sender: FDA-Public Use
  Company Number: US-SA-2019SA089364

PATIENT
  Age: 72 Year
  Sex: Female

DRUGS (11)
  1. LISINOPRIL. [Concomitant]
     Active Substance: LISINOPRIL
  2. NEURONTIN [Concomitant]
     Active Substance: GABAPENTIN
  3. SARILUMAB [Suspect]
     Active Substance: SARILUMAB
     Indication: RHEUMATOID ARTHRITIS
     Dosage: 150 MG, QOW
     Route: 058
     Dates: start: 20190412, end: 20190603
  4. METFORMIN HYDROCHLORIDE. [Concomitant]
     Active Substance: METFORMIN HYDROCHLORIDE
  5. VITAMIN D [VITAMIN D NOS] [Concomitant]
     Active Substance: VITAMIN D NOS
  6. CYMBALTA [Concomitant]
     Active Substance: DULOXETINE HYDROCHLORIDE
  7. LANTUS [Concomitant]
     Active Substance: INSULIN GLARGINE
     Dosage: 100UNIT/ML
  8. LEVOTHYROXINE. [Concomitant]
     Active Substance: LEVOTHYROXINE
  9. BIOTIN [Concomitant]
     Active Substance: BIOTIN
  10. ATENOLOL. [Concomitant]
     Active Substance: ATENOLOL
  11. NORVASC [Concomitant]
     Active Substance: AMLODIPINE BESYLATE

REACTIONS (14)
  - Alopecia [Not Recovered/Not Resolved]
  - Dry skin [Recovering/Resolving]
  - Rash papular [Recovering/Resolving]
  - Skin exfoliation [Recovering/Resolving]
  - Decreased appetite [Not Recovered/Not Resolved]
  - Erythema [Recovering/Resolving]
  - Skin discolouration [Recovering/Resolving]
  - Insomnia [Not Recovered/Not Resolved]
  - Rash [Recovering/Resolving]
  - Peripheral swelling [Unknown]
  - Peripheral swelling [Recovering/Resolving]
  - Blister [Not Recovered/Not Resolved]
  - Rash pruritic [Unknown]
  - Fatigue [Not Recovered/Not Resolved]
